FAERS Safety Report 10095756 (Version 2)
Quarter: 2014Q2

REPORT INFORMATION
  Report Type: Report from Study
  Country: US (occurrence: US)
  Receive Date: 20140422
  Receipt Date: 20140422
  Transmission Date: 20141212
  Serious: Yes (Other)
  Sender: FDA-Public Use
  Company Number: US-ABBVIE-11P-163-0728822-00

PATIENT
  Age: 59 Year
  Sex: Female
  Weight: 59.93 kg

DRUGS (10)
  1. HUMIRA 40 MG/0.8 ML PEN [Suspect]
     Indication: CROHN^S DISEASE
     Dosage: LOADING DOSE, ONE DOSE ONLY
     Dates: start: 20110522, end: 20110522
  2. ZANTAC [Concomitant]
     Indication: GASTROOESOPHAGEAL REFLUX DISEASE
  3. ATENOLOL [Concomitant]
     Indication: HYPERTENSION
  4. ASACOL [Concomitant]
     Indication: PRODUCT USED FOR UNKNOWN INDICATION
  5. ZETIA [Concomitant]
     Indication: BLOOD CHOLESTEROL INCREASED
     Dosage: 10 MG
  6. SIMVASTATIN [Concomitant]
     Indication: BLOOD CHOLESTEROL INCREASED
     Dosage: 80 MG DAILY
  7. CLARINEX [Concomitant]
     Indication: HYPERSENSITIVITY
     Dosage: DAILY
  8. B12 [Concomitant]
     Indication: PRODUCT USED FOR UNKNOWN INDICATION
     Route: 050
  9. OXYCODONE [Concomitant]
     Indication: PAIN
     Dosage: PRN
  10. RESTORIL [Concomitant]
     Indication: INSOMNIA
     Dosage: 30 MG AT NIGHT

REACTIONS (16)
  - Skin discolouration [Not Recovered/Not Resolved]
  - Peripheral swelling [Not Recovered/Not Resolved]
  - Blood pressure inadequately controlled [Recovering/Resolving]
  - Injection site pain [Recovering/Resolving]
  - Fatigue [Unknown]
  - Rash macular [Unknown]
  - Hyperhidrosis [Unknown]
  - Generalised oedema [Not Recovered/Not Resolved]
  - Feeling cold [Unknown]
  - Pain in extremity [Not Recovered/Not Resolved]
  - Pain in extremity [Unknown]
  - Erythema [Unknown]
  - Rash pustular [Unknown]
  - Urticaria [Unknown]
  - Skin haemorrhage [Unknown]
  - Weight increased [Recovered/Resolved]
